FAERS Safety Report 9926857 (Version 2)
Quarter: 2014Q1

REPORT INFORMATION
  Report Type: Spontaneous
  Country: US (occurrence: US)
  Receive Date: 20140226
  Receipt Date: 20140226
  Transmission Date: 20141002
  Serious: No
  Sender: FDA-Public Use
  Company Number: US-AMGEN-USASP2012075300

PATIENT
  Age: 31 Year
  Sex: Female
  Weight: 59.86 kg

DRUGS (2)
  1. ENBREL [Suspect]
     Indication: RHEUMATOID ARTHRITIS
     Dosage: 50 MG, QWK
     Route: 058
     Dates: start: 201104
  2. SYNTHROID [Concomitant]
     Indication: HYPOTHYROIDISM
     Dosage: 250 MG, QD
     Route: 048
     Dates: start: 2002

REACTIONS (1)
  - Joint swelling [Recovered/Resolved]
